FAERS Safety Report 12723703 (Version 1)
Quarter: 2016Q3

REPORT INFORMATION
  Report Type: Spontaneous
  Country: US (occurrence: US)
  Receive Date: 20160908
  Receipt Date: 20160908
  Transmission Date: 20161109
  Serious: Yes (Hospitalization, Other)
  Sender: FDA-Public Use
  Company Number: PHEH2016US022084

PATIENT
  Age: 59 Year
  Sex: Male

DRUGS (16)
  1. HYPER CVAD [Suspect]
     Active Substance: CYCLOPHOSPHAMIDE\CYTARABINE\DEXAMETHASONE\DOXORUBICIN\METHOTREXATE\VINCRISTINE
     Dosage: UNK
     Route: 065
     Dates: start: 20100105
  2. PONATINIB [Suspect]
     Active Substance: PONATINIB
     Dosage: 45 MG, UNK
     Route: 065
  3. BLINATUMOMAB [Suspect]
     Active Substance: BLINATUMOMAB
     Indication: PRODUCT USED FOR UNKNOWN INDICATION
     Route: 065
     Dates: start: 20150223
  4. BLINATUMOMAB [Suspect]
     Active Substance: BLINATUMOMAB
     Dosage: 28D INFUSION
     Route: 065
     Dates: start: 20151229
  5. DEXAMETHASONE. [Suspect]
     Active Substance: DEXAMETHASONE
     Indication: PRODUCT USED FOR UNKNOWN INDICATION
     Dosage: 40 MG, UNK
     Route: 065
  6. DASATINIB [Suspect]
     Active Substance: DASATINIB
     Dosage: 70 MG, UNK
     Route: 065
  7. GLEEVEC [Suspect]
     Active Substance: IMATINIB MESYLATE
     Indication: ACUTE LYMPHOCYTIC LEUKAEMIA
     Route: 065
     Dates: start: 200709
  8. CLOFARABINE [Concomitant]
     Active Substance: CLOFARABINE
     Indication: PRODUCT USED FOR UNKNOWN INDICATION
     Route: 065
  9. BOSUTINIB [Suspect]
     Active Substance: BOSUTINIB
     Indication: PRODUCT USED FOR UNKNOWN INDICATION
     Route: 065
  10. NILOTINIB [Suspect]
     Active Substance: NILOTINIB
     Indication: PRODUCT USED FOR UNKNOWN INDICATION
     Route: 065
  11. PONATINIB [Suspect]
     Active Substance: PONATINIB
     Indication: PRODUCT USED FOR UNKNOWN INDICATION
     Dosage: UNK
     Route: 065
     Dates: start: 20110411
  12. COREG [Concomitant]
     Active Substance: CARVEDILOL
     Indication: PRODUCT USED FOR UNKNOWN INDICATION
     Dosage: UNK
     Route: 065
     Dates: end: 20131031
  13. COREG [Concomitant]
     Active Substance: CARVEDILOL
     Dosage: 30 MG, QD
     Route: 065
     Dates: start: 20131207
  14. HYPER CVAD [Suspect]
     Active Substance: CYCLOPHOSPHAMIDE\CYTARABINE\DEXAMETHASONE\DOXORUBICIN\METHOTREXATE\VINCRISTINE
     Indication: ACUTE LYMPHOCYTIC LEUKAEMIA
     Dosage: UNK
     Route: 065
     Dates: start: 200603
  15. DASATINIB [Suspect]
     Active Substance: DASATINIB
     Indication: PRODUCT USED FOR UNKNOWN INDICATION
     Dosage: FOR 10 DAYS
     Route: 065
  16. COREG [Concomitant]
     Active Substance: CARVEDILOL
     Dosage: 45 MG, QD
     Route: 065

REACTIONS (15)
  - Pulmonary toxicity [Unknown]
  - Pyrexia [Unknown]
  - Sepsis [Recovered/Resolved]
  - Acute lymphocytic leukaemia recurrent [Recovering/Resolving]
  - Drug ineffective [Unknown]
  - Neutropenic infection [Unknown]
  - Subdural haematoma [Recovered/Resolved]
  - Pancytopenia [Unknown]
  - Epiploic appendagitis [Recovered/Resolved]
  - Pleural effusion [Unknown]
  - Renal impairment [Unknown]
  - Renal failure [Recovered/Resolved]
  - Arteritis [Unknown]
  - Rash [Unknown]
  - Colitis [Unknown]
